FAERS Safety Report 14816617 (Version 1)
Quarter: 2018Q2

REPORT INFORMATION
  Report Type: Spontaneous
  Country: BR (occurrence: BR)
  Receive Date: 20180426
  Receipt Date: 20180426
  Transmission Date: 20180711
  Serious: Yes (Other)
  Sender: FDA-Public Use
  Company Number: BR-PFIZER INC-2018165420

PATIENT
  Sex: Male

DRUGS (2)
  1. COSOPT [Suspect]
     Active Substance: DORZOLAMIDE HYDROCHLORIDE\TIMOLOL MALEATE
     Dosage: UNK
  2. XALATAN [Suspect]
     Active Substance: LATANOPROST
     Dosage: 1 DROP IN EACH EYE
     Dates: start: 1998

REACTIONS (3)
  - Blindness [Unknown]
  - Drug ineffective [Unknown]
  - Dementia Alzheimer^s type [Unknown]

NARRATIVE: CASE EVENT DATE: 2013
